FAERS Safety Report 17996192 (Version 1)
Quarter: 2020Q3

REPORT INFORMATION
  Report Type: Spontaneous
  Country: US (occurrence: US)
  Receive Date: 20200708
  Receipt Date: 20200708
  Transmission Date: 20201103
  Serious: No
  Sender: FDA-Public Use
  Company Number: US-UPSHER-SMITH LABORATORIES, LLC-2019USL00626

PATIENT
  Age: 63 Year
  Sex: Male

DRUGS (3)
  1. TESTOSTERONE. [Suspect]
     Active Substance: TESTOSTERONE
     Dosage: 25 MG (1/2 THE AMOUNT OF 1 TUBE), 1X/DAY
     Route: 061
     Dates: start: 2019
  2. TESTOSTERONE. [Suspect]
     Active Substance: TESTOSTERONE
     Dosage: 16.67 MG (1/3 THE AMOUNT OF 1 TUBE), 1X/DAY
     Route: 061
     Dates: start: 2019
  3. TESTOSTERONE. [Suspect]
     Active Substance: TESTOSTERONE
     Dosage: 50 MG, 1X/DAY BEFORE BED
     Route: 061
     Dates: start: 2019

REACTIONS (1)
  - Arthralgia [Not Recovered/Not Resolved]

NARRATIVE: CASE EVENT DATE: 2019
